FAERS Safety Report 12005546 (Version 1)
Quarter: 2016Q1

REPORT INFORMATION
  Report Type: Spontaneous
  Country: FR (occurrence: FR)
  Receive Date: 20160204
  Receipt Date: 20160204
  Transmission Date: 20160526
  Serious: Yes (Other)
  Sender: FDA-Public Use
  Company Number: FR-ROCHE-1705672

PATIENT
  Age: 60 Year
  Sex: Male

DRUGS (14)
  1. ATARAX [Concomitant]
     Active Substance: HYDROXYZINE\HYDROXYZINE HYDROCHLORIDE
     Route: 065
     Dates: start: 20151128, end: 20151208
  2. OMACOR [Concomitant]
     Active Substance: OMEGA-3-ACID ETHYL ESTERS
  3. DETENSIEL [Concomitant]
     Active Substance: BISOPROLOL FUMARATE
  4. AMIODARONE [Concomitant]
     Active Substance: AMIODARONE
  5. GLUCOR [Concomitant]
     Active Substance: ACARBOSE
  6. LEVOTHYROX [Concomitant]
     Active Substance: LEVOTHYROXINE
  7. FLUDEX (FRANCE) [Concomitant]
     Active Substance: INDAPAMIDE
  8. SEVIKAR [Concomitant]
     Active Substance: AMLODIPINE BESYLATE\OLMESARTAN MEDOXOMIL
  9. CEFOTAXIME [Concomitant]
     Active Substance: CEFOTAXIME SODIUM
     Route: 065
     Dates: start: 20151127, end: 20151203
  10. JANUMET [Concomitant]
     Active Substance: METFORMIN HYDROCHLORIDE\SITAGLIPTIN PHOSPHATE
  11. DIAMICRON [Concomitant]
     Active Substance: GLICLAZIDE
  12. TAMIFLU [Suspect]
     Active Substance: OSELTAMIVIR PHOSPHATE
     Indication: PRODUCT USED FOR UNKNOWN INDICATION
     Route: 048
     Dates: start: 20151128, end: 20151201
  13. XARELTO [Concomitant]
     Active Substance: RIVAROXABAN
  14. CRESTOR [Concomitant]
     Active Substance: ROSUVASTATIN CALCIUM

REACTIONS (2)
  - Delirium [Recovered/Resolved]
  - Hallucination [Recovered/Resolved]

NARRATIVE: CASE EVENT DATE: 20151130
